FAERS Safety Report 24969977 (Version 1)
Quarter: 2025Q1

REPORT INFORMATION
  Report Type: Spontaneous
  Country: US (occurrence: None)
  Receive Date: 20250213
  Receipt Date: 20250213
  Transmission Date: 20250408
  Serious: Yes (Other)
  Sender: FDA-CTU
  Company Number: None

PATIENT
  Age: 65 Year
  Sex: Female
  Weight: 79 kg

DRUGS (1)
  1. HYDRALAZINE HYDROCHLORIDE [Suspect]
     Active Substance: HYDRALAZINE HYDROCHLORIDE
     Indication: Hypertension
     Route: 042
     Dates: start: 20250209, end: 20250209

REACTIONS (5)
  - Blood pressure increased [None]
  - Arrhythmia [None]
  - Heart rate decreased [None]
  - Discomfort [None]
  - Electrocardiogram PR prolongation [None]

NARRATIVE: CASE EVENT DATE: 20250209
